FAERS Safety Report 13723099 (Version 1)
Quarter: 2017Q3

REPORT INFORMATION
  Report Type: Spontaneous
  Country: US (occurrence: US)
  Receive Date: 20170706
  Receipt Date: 20170706
  Transmission Date: 20171127
  Serious: No
  Sender: FDA-Public Use
  Company Number: US-BAYER-2017-126915

PATIENT
  Age: 85 Year
  Sex: Male
  Weight: 94 kg

DRUGS (2)
  1. ALEVE [Suspect]
     Active Substance: NAPROXEN SODIUM
     Indication: PAIN
     Dosage: 1 DF, QD (IN THE MORNING WITH FULL GLASS WATER)
     Route: 048
     Dates: start: 20170627, end: 20170629
  2. ASPIRIN 81 MG [Concomitant]
     Active Substance: ASPIRIN
     Indication: PROPHYLAXIS
     Dosage: 1 DF, QD (AT NIGHT TIME WITH WATER)
     Route: 048

REACTIONS (2)
  - Blood blister [Not Recovered/Not Resolved]
  - Product use complaint [None]

NARRATIVE: CASE EVENT DATE: 20170630
